FAERS Safety Report 15365897 (Version 2)
Quarter: 2018Q3

REPORT INFORMATION
  Report Type: Spontaneous
  Country: AR (occurrence: AR)
  Receive Date: 20180910
  Receipt Date: 20180924
  Transmission Date: 20181010
  Serious: Yes (Hospitalization, Other)
  Sender: FDA-Public Use
  Company Number: PHHY2018AR092613

PATIENT
  Sex: Male

DRUGS (5)
  1. DIOVAN [Suspect]
     Active Substance: VALSARTAN
     Indication: BLOOD PRESSURE INCREASED
     Dosage: 1 DF, QD
     Route: 065
     Dates: end: 201802
  2. CORBIS [Concomitant]
     Indication: PRODUCT USED FOR UNKNOWN INDICATION
     Dosage: 2 DF, QD
     Route: 065
  3. PRASUGREL. [Concomitant]
     Active Substance: PRASUGREL
     Indication: STENT PLACEMENT
     Route: 065
  4. ATORVASTATIN [Concomitant]
     Active Substance: ATORVASTATIN
     Indication: BLOOD CHOLESTEROL
     Route: 065
  5. PANTOPRAZOLE [Concomitant]
     Active Substance: PANTOPRAZOLE
     Indication: GASTRIC DISORDER
     Route: 065

REACTIONS (7)
  - Dyspnoea [Unknown]
  - Infarction [Unknown]
  - Ejection fraction abnormal [Unknown]
  - Arterial occlusive disease [Unknown]
  - Emotional disorder [Unknown]
  - Cardiac failure [Unknown]
  - Agitation [Unknown]

NARRATIVE: CASE EVENT DATE: 201802
